FAERS Safety Report 4727928-7 (Version None)
Quarter: 2005Q3

REPORT INFORMATION
  Report Type: 
  Country: None (occurrence: None)
  Receive Date: 20050725
  Receipt Date: 20050330
  Transmission Date: 20060218
  Serious: No
  Sender: FDA-Public Use
  Company Number: US_0504115203

PATIENT
  Age: 57 Year
  Sex: Female

DRUGS (1)
  1. STRATTERA [Suspect]
     Dosage: 50 MG /1 DAY

REACTIONS (3)
  - DEPRESSION [None]
  - DISORIENTATION [None]
  - FEELING ABNORMAL [None]
